FAERS Safety Report 25392211 (Version 1)
Quarter: 2025Q2

REPORT INFORMATION
  Report Type: Spontaneous
  Country: IT (occurrence: IT)
  Receive Date: 20250603
  Receipt Date: 20250603
  Transmission Date: 20250717
  Serious: Yes (Life-Threatening, Hospitalization)
  Sender: INTERCHEM
  Company Number: IT-HQ SPECIALTY-IT-2025INT000039

PATIENT
  Age: 14 Year
  Sex: Female
  Weight: 55.4 kg

DRUGS (10)
  1. DEXMEDETOMIDINE HYDROCHLORIDE [Suspect]
     Active Substance: DEXMEDETOMIDINE HYDROCHLORIDE
     Indication: Sedative therapy
     Route: 042
     Dates: start: 20240118, end: 20240118
  2. DEXMEDETOMIDINE HYDROCHLORIDE [Suspect]
     Active Substance: DEXMEDETOMIDINE HYDROCHLORIDE
     Indication: Premedication
  3. PROPOFOL [Suspect]
     Active Substance: PROPOFOL
     Indication: Sedative therapy
     Route: 042
     Dates: start: 20240312, end: 20240312
  4. ONDANSETRON [Concomitant]
     Active Substance: ONDANSETRON
     Indication: Regurgitation
     Route: 065
     Dates: start: 20240312, end: 20240312
  5. METHOTREXATE [Concomitant]
     Active Substance: METHOTREXATE
     Indication: Lymphocytic leukaemia
     Route: 065
     Dates: start: 20240312
  6. THIOGUANINE [Concomitant]
     Active Substance: THIOGUANINE
     Indication: Lymphocytic leukaemia
     Route: 065
  7. AMLODIPINE [Concomitant]
     Active Substance: AMLODIPINE BESYLATE
     Indication: Product used for unknown indication
     Route: 065
  8. LANSOPRAZOLE [Concomitant]
     Active Substance: LANSOPRAZOLE
     Indication: Product used for unknown indication
     Route: 065
  9. LEUPROLIDE ACETATE [Concomitant]
     Active Substance: LEUPROLIDE ACETATE
     Indication: Product used for unknown indication
     Route: 065
  10. ACYCLOVIR [Concomitant]
     Active Substance: ACYCLOVIR
     Indication: Product used for unknown indication
     Route: 065

REACTIONS (4)
  - Drug-genetic interaction [Unknown]
  - Sedation complication [Unknown]
  - Oxygen saturation decreased [Recovered/Resolved]
  - Apnoea [Unknown]

NARRATIVE: CASE EVENT DATE: 20240312
